FAERS Safety Report 10140842 (Version 2)
Quarter: 2014Q2

REPORT INFORMATION
  Report Type: Spontaneous
  Country: JP (occurrence: JP)
  Receive Date: 20140429
  Receipt Date: 20140515
  Transmission Date: 20141212
  Serious: Yes (Other)
  Sender: FDA-Public Use
  Company Number: JP-TAKEDA-2014TJP005477

PATIENT
  Age: 77 Year
  Sex: Male

DRUGS (3)
  1. LIOVEL COMBINATION TABLETS LD [Suspect]
     Indication: DIABETES MELLITUS
     Dosage: 1 DF, QD
     Route: 048
     Dates: start: 201403, end: 201404
  2. SUNRYTHM [Concomitant]
     Dosage: UNK
     Route: 065
  3. HARNAL [Concomitant]
     Dosage: UNK
     Route: 048

REACTIONS (2)
  - Blood glucose increased [Not Recovered/Not Resolved]
  - Gamma-glutamyltransferase increased [Not Recovered/Not Resolved]
